FAERS Safety Report 15722596 (Version 1)
Quarter: 2018Q4

REPORT INFORMATION
  Report Type: Spontaneous
  Country: US (occurrence: US)
  Receive Date: 20181213
  Receipt Date: 20181213
  Transmission Date: 20190205
  Serious: Yes (Other)
  Sender: FDA-Public Use
  Company Number: None

PATIENT
  Age: 72 Year
  Sex: Female
  Weight: 61.5 kg

DRUGS (2)
  1. CAMPTOSAR [Suspect]
     Active Substance: IRINOTECAN HYDROCHLORIDE
     Indication: COLON CANCER
     Dosage: ?          OTHER FREQUENCY:EVERY 2 WEEKS;?
     Route: 041
  2. DEXTROSE 5% WATER [Concomitant]
     Dates: start: 20181212, end: 20181212

REACTIONS (3)
  - Paraesthesia oral [None]
  - Blepharospasm [None]
  - Hypoaesthesia oral [None]

NARRATIVE: CASE EVENT DATE: 20181212
